FAERS Safety Report 13995884 (Version 3)
Quarter: 2017Q4

REPORT INFORMATION
  Report Type: Report from Study
  Country: US (occurrence: US)
  Receive Date: 20170921
  Receipt Date: 20171028
  Transmission Date: 20180321
  Serious: No
  Sender: FDA-Public Use
  Company Number: US-AMGEN-USASP2017142007

PATIENT
  Age: 56 Year
  Sex: Female

DRUGS (1)
  1. ENBREL [Suspect]
     Active Substance: ETANERCEPT
     Indication: PSORIASIS
     Dosage: 50 MG, 2 TIMES/WK
     Route: 065
     Dates: start: 201709

REACTIONS (1)
  - Injection site urticaria [Not Recovered/Not Resolved]

NARRATIVE: CASE EVENT DATE: 201709
